FAERS Safety Report 4553603-8 (Version None)
Quarter: 2004Q4

REPORT INFORMATION
  Report Type: 
  Country: None (occurrence: None)
  Receive Date: 20041227
  Receipt Date: 20041028
  Transmission Date: 20050328
  Serious: No
  Sender: FDA-Public Use
  Company Number: 04P-163-0279246-00

PATIENT
  Age: 63 Year
  Sex: Female
  Weight: 61.6892 kg

DRUGS (11)
  1. HUMIRA [Suspect]
     Indication: IMMUNODEFICIENCY COMMON VARIABLE
     Dosage: 40 MG, 1 IN 2 WK, SUBCUTANEOUS
     Route: 058
     Dates: start: 20040301, end: 20040701
  2. HUMIRA [Suspect]
     Indication: RHEUMATOID ARTHRITIS
     Dosage: 40 MG, 1 IN 2 WK, SUBCUTANEOUS
     Route: 058
     Dates: start: 20040301, end: 20040701
  3. HUMIRA [Suspect]
     Indication: IMMUNODEFICIENCY COMMON VARIABLE
     Dosage: 40 MG, 1 IN 2 WK, SUBCUTANEOUS
     Route: 058
     Dates: start: 20040921
  4. HUMIRA [Suspect]
     Indication: RHEUMATOID ARTHRITIS
     Dosage: 40 MG, 1 IN 2 WK, SUBCUTANEOUS
     Route: 058
     Dates: start: 20040921
  5. IMMUNE GLOBULIN INTRAVENOUS (HUMAN) [Concomitant]
  6. LEVOTHYROXINE SODIUM [Concomitant]
  7. EFFEXOR [Concomitant]
  8. FOLIC ACID [Concomitant]
  9. METHOTREXATE SODIUM [Concomitant]
  10. OMEPRAZOLE [Concomitant]
  11. ESTROGENS CONJUGATED [Concomitant]

REACTIONS (4)
  - INJECTION SITE ERYTHEMA [None]
  - PAIN [None]
  - SKIN NODULE [None]
  - UPPER RESPIRATORY TRACT INFECTION [None]
